FAERS Safety Report 7277841-9 (Version None)
Quarter: 2011Q1

REPORT INFORMATION
  Report Type: 
  Country: None (occurrence: None)
  Receive Date: 20110207
  Receipt Date: 20110131
  Transmission Date: 20110831
  Serious: Yes (Hospitalization)
  Sender: FDA-Public Use
  Company Number: JP-ACTELION-A-CH2011-44595

PATIENT
  Age: 33 Year
  Sex: Female

DRUGS (13)
  1. TRACLEER [Suspect]
     Dosage: 62.5 MG, QD
     Route: 048
     Dates: start: 20070522, end: 20070824
  2. EPOPROSTENOL SODIUM [Concomitant]
  3. SETIPTILINE [Concomitant]
  4. OXYGEN [Concomitant]
     Dosage: 250 MG, QD
     Route: 048
     Dates: end: 20110119
  5. OXYGEN [Concomitant]
     Dosage: 62.5 MG, QD
     Route: 048
     Dates: start: 20070522, end: 20070824
  6. OXYGEN [Concomitant]
     Dosage: 187.5 MG, QD
     Route: 048
     Dates: start: 20070825
  7. WARFARIN POTASSIUM [Concomitant]
  8. TRACLEER [Suspect]
     Dosage: 187.5 MG, QD
     Route: 048
     Dates: start: 20070825
  9. BIFIDOBACTERIUM BIFIDUM [Concomitant]
  10. SERTRALINE HYDROCHLORIDE [Suspect]
  11. TRACLEER [Suspect]
     Indication: PULMONARY ARTERIAL HYPERTENSION
     Dosage: 250 MG, QD
     Route: 048
     Dates: end: 20110119
  12. TRACLEER [Suspect]
     Dosage: 31.25 MG, QD
     Route: 048
     Dates: start: 20070424, end: 20070521
  13. OXYGEN [Concomitant]
     Dosage: 31.25 MG, QD
     Route: 048
     Dates: start: 20070424, end: 20070521

REACTIONS (6)
  - WHITE BLOOD CELL COUNT DECREASED [None]
  - LIVER FUNCTION TEST ABNORMAL [None]
  - ASPARTATE AMINOTRANSFERASE INCREASED [None]
  - ALANINE AMINOTRANSFERASE INCREASED [None]
  - BLOOD ALKALINE PHOSPHATASE INCREASED [None]
  - GAMMA-GLUTAMYLTRANSFERASE INCREASED [None]
